FAERS Safety Report 5611664-9 (Version None)
Quarter: 2008Q1

REPORT INFORMATION
  Report Type: 
  Country: None (occurrence: None)
  Receive Date: 20080201
  Receipt Date: 20080123
  Transmission Date: 20080703
  Serious: Yes (Hospitalization)
  Sender: FDA-Public Use
  Company Number: FR-ABBOTT-08P-056-0435067-00

PATIENT
  Sex: Male

DRUGS (3)
  1. DEPAKENE [Suspect]
     Indication: EPILEPSY
     Route: 048
     Dates: start: 20060101, end: 20060901
  2. DEPAKENE [Suspect]
     Route: 048
     Dates: start: 20060901, end: 20061001
  3. DEPAKENE [Suspect]
     Route: 048
     Dates: start: 20061001

REACTIONS (8)
  - AKINESIA [None]
  - AMNESIA [None]
  - APHASIA [None]
  - APRAXIA [None]
  - CEREBRAL ATROPHY [None]
  - MOBILITY DECREASED [None]
  - PARKINSONISM [None]
  - PSYCHOMOTOR SKILLS IMPAIRED [None]
